FAERS Safety Report 11468337 (Version 2)
Quarter: 2015Q3

REPORT INFORMATION
  Report Type: Spontaneous
  Country: US (occurrence: US)
  Receive Date: 20150903
  Receipt Date: 20150903
  Transmission Date: 20151125
  Serious: No
  Sender: FDA-Public Use
  Company Number: US-ELI_LILLY_AND_COMPANY-US201108006144

PATIENT
  Sex: Female

DRUGS (1)
  1. CYMBALTA [Suspect]
     Active Substance: DULOXETINE HYDROCHLORIDE
     Indication: BACK PAIN
     Dosage: 30 MG, SINGLE

REACTIONS (21)
  - Somnolence [Unknown]
  - Dry mouth [Unknown]
  - Gait disturbance [Unknown]
  - Panic reaction [Unknown]
  - Fatigue [Unknown]
  - Tremor [Unknown]
  - Coordination abnormal [Unknown]
  - Sluggishness [Unknown]
  - Nausea [Unknown]
  - Heart rate irregular [Unknown]
  - Dizziness [Unknown]
  - Headache [Unknown]
  - Vision blurred [Unknown]
  - Tinnitus [Unknown]
  - Asthenia [Unknown]
  - Pyrexia [Unknown]
  - Hyperhidrosis [Unknown]
  - Decreased appetite [Unknown]
  - Chills [Unknown]
  - Anxiety [Unknown]
  - Weight decreased [Unknown]
